FAERS Safety Report 24218870 (Version 1)
Quarter: 2024Q3

REPORT INFORMATION
  Report Type: Spontaneous
  Country: US (occurrence: None)
  Receive Date: 20240816
  Receipt Date: 20240816
  Transmission Date: 20241017
  Serious: Yes (Hospitalization)
  Sender: Public
  Company Number: None

PATIENT
  Age: 68 Year
  Sex: Female

DRUGS (1)
  1. LENALIDOMIDE [Suspect]
     Active Substance: LENALIDOMIDE
     Indication: Myelodysplastic syndrome
     Dosage: OTHER FREQUENCY : 21 DAYS ON THEN 7 DAYS OFF;?
     Dates: start: 202310

REACTIONS (2)
  - Limb injury [None]
  - Dyspnoea [None]

NARRATIVE: CASE EVENT DATE: 20240809
